FAERS Safety Report 5112639-9 (Version None)
Quarter: 2006Q3

REPORT INFORMATION
  Report Type: 
  Country: None (occurrence: None)
  Receive Date: 20060922
  Receipt Date: 20060913
  Transmission Date: 20061208
  Serious: Yes (Other)
  Sender: FDA-Public Use
  Company Number: US-JNJFOC-20060903087

PATIENT
  Sex: Female
  Weight: 91.63 kg

DRUGS (3)
  1. REMICADE [Suspect]
     Indication: COLITIS ULCERATIVE
     Route: 042
  2. ASACOL [Concomitant]
     Indication: COLITIS ULCERATIVE
  3. FLUOXETINE HCL [Concomitant]
     Indication: COLITIS ULCERATIVE

REACTIONS (5)
  - APHONIA [None]
  - HEART RATE INCREASED [None]
  - HOT FLUSH [None]
  - INFUSION RELATED REACTION [None]
  - URTICARIA [None]
